FAERS Safety Report 9410842 (Version 1)
Quarter: 2013Q3

REPORT INFORMATION
  Report Type: Spontaneous
  Country: FR (occurrence: FR)
  Receive Date: 20130719
  Receipt Date: 20130719
  Transmission Date: 20140515
  Serious: Yes (Other)
  Sender: FDA-Public Use
  Company Number: FR-B.I. PHARMACEUTICALS,INC./RIDGEFIELD-2013-FF-01885FF

PATIENT
  Age: 79 Year
  Sex: Female

DRUGS (3)
  1. PRADAXA [Suspect]
     Indication: ATRIAL FIBRILLATION
     Dosage: 220 MG
     Route: 048
     Dates: start: 20121015
  2. COOLMETEC [Concomitant]
     Indication: HYPERTENSION
  3. FLECAINE [Concomitant]
     Indication: ATRIAL FIBRILLATION

REACTIONS (2)
  - Ischaemic stroke [Recovered/Resolved]
  - Hemiparesis [Recovered/Resolved]
